FAERS Safety Report 10440985 (Version 1)
Quarter: 2014Q3

REPORT INFORMATION
  Report Type: Spontaneous
  Country: US (occurrence: None)
  Receive Date: 20140905
  Receipt Date: 20140905
  Transmission Date: 20150326
  Serious: Yes (Life-Threatening, Hospitalization, Other)
  Sender: FDA-Public Use
  Company Number: ADR-2014-01583

PATIENT
  Age: 58 Year
  Sex: Female

DRUGS (2)
  1. BACLOFEN INTRATHECAL ^1.000.0MG/ML^ [Suspect]
     Active Substance: BACLOFEN
     Indication: PAIN
  2. HYDROMORPHONE INTRATHECAL 50.0 MG/ML [Suspect]
     Active Substance: HYDROMORPHONE

REACTIONS (5)
  - Spinal deformity [None]
  - Blood potassium decreased [None]
  - Wrong technique in drug usage process [None]
  - Pain [None]
  - Convulsion [None]
